FAERS Safety Report 6412465-4 (Version None)
Quarter: 2009Q4

REPORT INFORMATION
  Report Type: 
  Country: None (occurrence: None)
  Receive Date: 20091023
  Receipt Date: 20091016
  Transmission Date: 20100525
  Serious: Yes (Hospitalization)
  Sender: FDA-Public Use
  Company Number: US-ABBOTT-09P-163-0603221-00

PATIENT
  Sex: Male
  Weight: 90.8 kg

DRUGS (17)
  1. SIMCOR [Suspect]
     Indication: BLOOD TRIGLYCERIDES INCREASED
     Dosage: 500/20
     Route: 048
     Dates: start: 20090401
  2. COUMADIN [Suspect]
     Indication: TRANSIENT ISCHAEMIC ATTACK
     Route: 048
     Dates: start: 20091009
  3. COUMADIN [Suspect]
     Route: 048
     Dates: start: 19910101, end: 20090901
  4. AZOR [Concomitant]
     Indication: DRUG USE FOR UNKNOWN INDICATION
     Dosage: 10/40
     Route: 048
  5. IMDUR [Concomitant]
     Indication: DRUG USE FOR UNKNOWN INDICATION
     Route: 048
  6. COREG [Concomitant]
     Indication: DRUG USE FOR UNKNOWN INDICATION
     Route: 048
  7. TECTURNA [Concomitant]
     Indication: DRUG USE FOR UNKNOWN INDICATION
     Dosage: 150/25
     Route: 048
  8. SYNTHROID [Concomitant]
     Indication: DRUG USE FOR UNKNOWN INDICATION
     Route: 048
  9. NEURONTIN [Concomitant]
     Indication: DRUG USE FOR UNKNOWN INDICATION
     Route: 048
  10. PREVACID [Concomitant]
     Indication: DRUG USE FOR UNKNOWN INDICATION
     Route: 048
  11. ALLOPURINOL [Concomitant]
     Indication: DRUG USE FOR UNKNOWN INDICATION
     Route: 048
  12. VALIUM [Concomitant]
     Indication: DRUG USE FOR UNKNOWN INDICATION
     Route: 048
  13. FLEXERIL [Concomitant]
     Indication: DRUG USE FOR UNKNOWN INDICATION
     Route: 048
  14. DARVOCET-N 100 [Concomitant]
     Indication: BACK PAIN
     Dosage: 100 MG
     Route: 048
  15. FLOMAX [Concomitant]
     Indication: DRUG USE FOR UNKNOWN INDICATION
     Route: 048
  16. LOVAZA [Concomitant]
     Indication: DRUG USE FOR UNKNOWN INDICATION
  17. VITAMIN E [Concomitant]
     Indication: DRUG USE FOR UNKNOWN INDICATION

REACTIONS (5)
  - CEREBRAL HAEMORRHAGE [None]
  - FLUSHING [None]
  - HEADACHE [None]
  - MUSCULAR WEAKNESS [None]
  - PARAESTHESIA [None]
